FAERS Safety Report 9201029 (Version 1)
Quarter: 2013Q1

REPORT INFORMATION
  Report Type: Spontaneous
  Country: US (occurrence: None)
  Receive Date: 20130327
  Receipt Date: 20130327
  Transmission Date: 20140127
  Serious: Yes (Other)
  Sender: FDA-Public Use
  Company Number: DEXA20130001

PATIENT
  Age: 10 Year
  Sex: Female

DRUGS (2)
  1. DEXAMETHASONE ELIXIR (DEXAMETHASONE) (UNKNOWN) [Suspect]
  2. BEVACIZUMAB [Suspect]

REACTIONS (2)
  - Osteonecrosis [None]
  - Swelling [None]
